FAERS Safety Report 10985010 (Version 1)
Quarter: 2015Q2

REPORT INFORMATION
  Report Type: Spontaneous
  Country: US (occurrence: US)
  Receive Date: 20150403
  Receipt Date: 20150403
  Transmission Date: 20150821
  Serious: Yes (Hospitalization, Other)
  Sender: FDA-Public Use
  Company Number: US-ASTRAZENECA-2015SE30054

PATIENT
  Age: 71 Year
  Sex: Female
  Weight: 83.9 kg

DRUGS (14)
  1. XANTAC [Concomitant]
  2. TAMOXIFEN [Suspect]
     Active Substance: TAMOXIFEN
     Indication: BREAST CANCER
     Route: 048
     Dates: start: 2012
  3. VITAMIN D 3 [Concomitant]
     Indication: BONE DISORDER
  4. ANTIDEPRESSANT [Concomitant]
     Active Substance: UNSPECIFIED INGREDIENT
     Indication: HOT FLUSH
  5. NEXIUM [Suspect]
     Active Substance: ESOMEPRAZOLE MAGNESIUM
     Indication: HIATUS HERNIA
     Route: 048
     Dates: start: 2000, end: 201412
  6. VITAMIN E [Concomitant]
     Active Substance: .ALPHA.-TOCOPHEROL
     Indication: ANTICOAGULANT THERAPY
  7. SUPER B COMPLEX [Concomitant]
     Active Substance: CYANOCOBALAMIN\DEXPANTHENOL\NIACINAMIDE\PYRIDOXINE HYDROCHLORIDE\RIBOFLAVIN 5^-PHOSPHATE SODIUM\THIAMINE HYDROCHLORIDE\VITAMIN B COMPLEX
     Indication: SUPPLEMENTATION THERAPY
     Dosage: DAILY
  8. SUPER B COMPLEX [Concomitant]
     Active Substance: CYANOCOBALAMIN\DEXPANTHENOL\NIACINAMIDE\PYRIDOXINE HYDROCHLORIDE\RIBOFLAVIN 5^-PHOSPHATE SODIUM\THIAMINE HYDROCHLORIDE\VITAMIN B COMPLEX
     Indication: IMMUNE SYSTEM DISORDER
     Dosage: DAILY
  9. VIVELLE [Concomitant]
     Active Substance: ESTRADIOL
     Indication: HOT FLUSH
  10. NEXIUM [Suspect]
     Active Substance: ESOMEPRAZOLE MAGNESIUM
     Indication: HIATUS HERNIA
     Dosage: TOOK AN EXTRA NEXIUM 40MG ON THE DAYS WHEN THE HEARTBURN AND INDIGESTION WERE PLAYING UP
     Route: 048
  11. NEXIUM [Suspect]
     Active Substance: ESOMEPRAZOLE MAGNESIUM
     Indication: HIATUS HERNIA
     Route: 048
     Dates: start: 201412
  12. SENTRUM WOMEN [Concomitant]
     Indication: SUPPLEMENTATION THERAPY
     Dosage: DAILY
  13. VIVELLE [Concomitant]
     Active Substance: ESTRADIOL
     Indication: MENOPAUSE
  14. PREDNISONE. [Concomitant]
     Active Substance: PREDNISONE

REACTIONS (23)
  - Thyroid neoplasm [Unknown]
  - Dyspepsia [Unknown]
  - Weight increased [Unknown]
  - Eating disorder [Unknown]
  - Cholelithiasis [Unknown]
  - Pain in extremity [Unknown]
  - Nervous system disorder [Recovered/Resolved]
  - Emotional disorder [Recovered/Resolved]
  - Hypertension [Unknown]
  - Off label use [Recovered/Resolved]
  - Breast cancer [Unknown]
  - Brain mass [Unknown]
  - Diverticulitis [Unknown]
  - Thyroid disorder [Unknown]
  - Musculoskeletal pain [Unknown]
  - Joint dislocation [Unknown]
  - Intentional product use issue [Unknown]
  - Intentional product misuse [Unknown]
  - Hot flush [Unknown]
  - Fall [Unknown]
  - Stress [Recovered/Resolved]
  - Dyspepsia [Recovered/Resolved]
  - Arthritis [Unknown]

NARRATIVE: CASE EVENT DATE: 2000
